FAERS Safety Report 22235698 (Version 1)
Quarter: 2023Q2

REPORT INFORMATION
  Report Type: Report from Study
  Country: RU (occurrence: RU)
  Receive Date: 20230420
  Receipt Date: 20230420
  Transmission Date: 20230721
  Serious: Yes (Other)
  Sender: FDA-Public Use
  Company Number: RU-SUN PHARMACEUTICAL INDUSTRIES LTD-2023R1-385943

PATIENT
  Age: 26 Year
  Sex: Male

DRUGS (5)
  1. OLANZAPINE [Suspect]
     Active Substance: OLANZAPINE
     Indication: Tourette^s disorder
     Dosage: 15MG/DAY
     Route: 065
  2. SERTRALINE [Suspect]
     Active Substance: SERTRALINE HYDROCHLORIDE
     Indication: Tourette^s disorder
     Dosage: 300MG/DAY
     Route: 065
  3. VALPROIC ACID [Suspect]
     Active Substance: VALPROIC ACID
     Indication: Tourette^s disorder
     Dosage: 1000MG/DAY
     Route: 065
  4. OXCARBAZEPINE [Suspect]
     Active Substance: OXCARBAZEPINE
     Indication: Tourette^s disorder
     Dosage: 300MG/DAY
     Route: 065
  5. PHENAZEPAM [Suspect]
     Active Substance: PHENAZEPAM
     Indication: Tourette^s disorder
     Dosage: 1.5MG/DAY
     Route: 065

REACTIONS (1)
  - Drug ineffective [Unknown]
